FAERS Safety Report 9943223 (Version 1)
Quarter: 2014Q1

REPORT INFORMATION
  Report Type: Spontaneous
  Country: GB (occurrence: GB)
  Receive Date: 20140303
  Receipt Date: 20140303
  Transmission Date: 20141002
  Serious: Yes (Other)
  Sender: FDA-Public Use
  Company Number: GB-B.I. PHARMACEUTICALS,INC./RIDGEFIELD-2014-BI-08203GD

PATIENT
  Age: 31 Year
  Sex: Male

DRUGS (4)
  1. NEVIRAPINE [Suspect]
     Indication: HIV TEST POSITIVE
     Dosage: 200 MG
     Route: 065
  2. NEVIRAPINE [Suspect]
     Dosage: 400 MG
     Route: 065
  3. TENOFOVIR [Suspect]
     Indication: HIV TEST POSITIVE
     Route: 065
  4. EMTRICITABINE [Suspect]
     Indication: HIV TEST POSITIVE
     Route: 065

REACTIONS (10)
  - Secondary syphilis [Recovered/Resolved]
  - Drug hypersensitivity [Unknown]
  - Rash generalised [Unknown]
  - Malaise [Unknown]
  - Hepatitis syphilitic [Recovered/Resolved]
  - Headache [Unknown]
  - Arthralgia [Unknown]
  - Myalgia [Unknown]
  - Pyrexia [Unknown]
  - Lip ulceration [Unknown]
